FAERS Safety Report 14232907 (Version 1)
Quarter: 2017Q4

REPORT INFORMATION
  Report Type: Spontaneous
  Country: US (occurrence: US)
  Receive Date: 20171129
  Receipt Date: 20171129
  Transmission Date: 20180321
  Serious: No
  Sender: FDA-Public Use
  Company Number: US-DUSA PHARMACEUTICALS, INC.-2036267

PATIENT
  Age: 71 Year
  Sex: Female

DRUGS (2)
  1. LEVULAN KERASTICK [Suspect]
     Active Substance: AMINOLEVULINIC ACID HYDROCHLORIDE
     Indication: ACTINIC KERATOSIS
     Route: 061
     Dates: start: 20170105, end: 20170105
  2. LOSARTAN. [Concomitant]
     Active Substance: LOSARTAN

REACTIONS (11)
  - Application site exfoliation [Recovered/Resolved]
  - Eye irritation [Recovering/Resolving]
  - Eye swelling [Recovered/Resolved]
  - Drug ineffective [Unknown]
  - Patient dissatisfaction with treatment [Unknown]
  - Foreign body sensation in eyes [Recovering/Resolving]
  - Eye irritation [Not Recovered/Not Resolved]
  - Eye burns [Unknown]
  - Dry eye [Not Recovered/Not Resolved]
  - Application site scab [Recovered/Resolved]
  - Refusal of treatment by patient [None]

NARRATIVE: CASE EVENT DATE: 20170105
